FAERS Safety Report 9140268 (Version 2)
Quarter: 2013Q2

REPORT INFORMATION
  Report Type: Spontaneous
  Country: US (occurrence: US)
  Receive Date: 20130305
  Receipt Date: 20130424
  Transmission Date: 20140414
  Serious: Yes (Hospitalization, Other)
  Sender: FDA-Public Use
  Company Number: PHEH2013US005238

PATIENT
  Age: 50 Year
  Sex: Female

DRUGS (3)
  1. GILENYA [Suspect]
     Indication: MULTIPLE SCLEROSIS
     Dosage: 0.5 MG, UNK
     Route: 048
     Dates: start: 20110510
  2. DIAZEPAM [Concomitant]
     Dosage: 2 MG, QD
     Route: 048
  3. CYMBALTA [Concomitant]
     Dosage: 30 MG, QD
     Route: 048

REACTIONS (4)
  - Renal cancer [Unknown]
  - Urinary tract infection [Unknown]
  - Micturition urgency [Unknown]
  - Nervousness [Unknown]
